FAERS Safety Report 10579660 (Version 2)
Quarter: 2014Q4

REPORT INFORMATION
  Report Type: Spontaneous
  Country: CN (occurrence: CN)
  Receive Date: 20141112
  Receipt Date: 20141112
  Transmission Date: 20150529
  Serious: Yes (Hospitalization)
  Sender: FDA-Public Use
  Company Number: CN-ASTRAZENECA-2014SE63674

PATIENT
  Age: 34 Year
  Sex: Male

DRUGS (3)
  1. HORMONE [Concomitant]
     Route: 041
  2. NEXIUM [Suspect]
     Active Substance: ESOMEPRAZOLE MAGNESIUM
     Indication: CHRONIC GASTRITIS
     Dosage: TWO TIMES A DAY
     Route: 048
     Dates: start: 20140817, end: 20140821
  3. CEPHALOSPORIN [Concomitant]
     Active Substance: UNSPECIFIED INGREDIENT
     Route: 041

REACTIONS (5)
  - Lymphoma [Unknown]
  - Myalgia [Recovered/Resolved]
  - Gait disturbance [Recovering/Resolving]
  - Pyrexia [Recovered/Resolved]
  - Oedema peripheral [Recovered/Resolved]

NARRATIVE: CASE EVENT DATE: 20140818
